FAERS Safety Report 12646206 (Version 1)
Quarter: 2016Q3

REPORT INFORMATION
  Report Type: Spontaneous
  Country: US (occurrence: US)
  Receive Date: 20160811
  Receipt Date: 20160811
  Transmission Date: 20161109
  Serious: No
  Sender: FDA-Public Use
  Company Number: US-ENDO PHARMACEUTICALS INC.-2015-003917

PATIENT
  Sex: Female
  Weight: 72.64 kg

DRUGS (1)
  1. PREDNISONE TABLETS 5MG [Suspect]
     Active Substance: PREDNISONE
     Indication: SINUSITIS
     Route: 048
     Dates: start: 20151030

REACTIONS (2)
  - Product packaging issue [Unknown]
  - Malaise [Unknown]

NARRATIVE: CASE EVENT DATE: 2015
